FAERS Safety Report 6653968-7 (Version None)
Quarter: 2010Q1

REPORT INFORMATION
  Report Type: 
  Country: None (occurrence: None)
  Receive Date: 20100324
  Receipt Date: 20100314
  Transmission Date: 20100710
  Serious: Yes (Hospitalization, Other)
  Sender: FDA-Public Use
  Company Number: 2010SP012472

PATIENT
  Age: 23 Year
  Sex: Female
  Weight: 42.2 kg

DRUGS (1)
  1. IMPLANON [Suspect]
     Indication: CONTRACEPTION
     Dosage: 68 MG;SBDE
     Dates: start: 20061023, end: 20091221

REACTIONS (3)
  - DEPRESSION [None]
  - INCORRECT DRUG ADMINISTRATION DURATION [None]
  - TYPE 1 DIABETES MELLITUS [None]
